FAERS Safety Report 9026146 (Version 1)
Quarter: 2013Q1

REPORT INFORMATION
  Report Type: Spontaneous
  Country: US (occurrence: None)
  Receive Date: 20130108
  Receipt Date: 20130108
  Transmission Date: 20140127
  Serious: Yes (Disabling)
  Sender: FDA-Public Use
  Company Number: 1544401

PATIENT
  Age: 59 Year
  Sex: Male

DRUGS (2)
  1. HEPARIN SODIUM [Suspect]
     Indication: THROMBOLYSIS
     Route: 042
  2. EPTIFIBATIDE [Concomitant]

REACTIONS (21)
  - Ecthyma [None]
  - Staphylococcal infection [None]
  - Venous thrombosis [None]
  - Heparin-induced thrombocytopenia [None]
  - Pulse absent [None]
  - Cyanosis [None]
  - Haemorrhage subcutaneous [None]
  - Skin swelling [None]
  - Peripheral artery thrombosis [None]
  - Arterial thrombosis [None]
  - Blood alkaline phosphatase increased [None]
  - Gamma-glutamyltransferase increased [None]
  - Pleural fibrosis [None]
  - Vascular occlusion [None]
  - Peripheral arterial occlusive disease [None]
  - Gangrene [None]
  - Leg amputation [None]
  - Vasculitis necrotising [None]
  - Epidermal necrosis [None]
  - Cellulitis [None]
  - Drug interaction [None]
